FAERS Safety Report 15492710 (Version 3)
Quarter: 2018Q4

REPORT INFORMATION
  Report Type: Report from Study
  Country: MX (occurrence: MX)
  Receive Date: 20181012
  Receipt Date: 20181031
  Transmission Date: 20190205
  Serious: Yes (Other)
  Sender: FDA-Public Use
  Company Number: MX-GLAXOSMITHKLINE-MX2018183378

PATIENT
  Age: 58 Year
  Sex: Female
  Weight: 65 kg

DRUGS (7)
  1. DICLOFENAC SODIUM. [Suspect]
     Active Substance: DICLOFENAC SODIUM
     Indication: INFLAMMATION
     Dosage: 100 MG, Q12H (APPROXIMATELY 20 YEARS AGO)
     Route: 048
  2. DICLOFENAC SODIUM. [Suspect]
     Active Substance: DICLOFENAC SODIUM
     Indication: PAIN
  3. DICLOFENAC SODIUM. [Suspect]
     Active Substance: DICLOFENAC SODIUM
     Indication: ARTHRALGIA
  4. COSENTYX [Suspect]
     Active Substance: SECUKINUMAB
     Indication: ANKYLOSING SPONDYLITIS
     Dosage: 150 MG/ML, 1 APPLICATION EVERY WEEK (FOR 5 WEEKS) AND THEN 1 APPLICATION EVERY MONTH
     Route: 030
     Dates: start: 20180829
  5. HIZAAR [Concomitant]
     Active Substance: HYDROCHLOROTHIAZIDE\LOSARTAN POTASSIUM
     Indication: HYPERTENSION
     Dosage: 0.5 DF, Q12H
     Route: 048
     Dates: start: 2015
  6. DICLOFENAC SODIUM. [Suspect]
     Active Substance: DICLOFENAC SODIUM
     Indication: SWELLING
  7. TRADOL [Concomitant]
     Active Substance: TRAMADOL HYDROCHLORIDE
     Indication: PAIN
     Dosage: 100 MG, Q12H
     Route: 065
     Dates: start: 20180101

REACTIONS (7)
  - Arthralgia [Unknown]
  - Ankylosing spondylitis [Recovered/Resolved]
  - Incorrect route of product administration [Unknown]
  - Joint effusion [Unknown]
  - Inflammation [Recovering/Resolving]
  - Arthritis [Recovered/Resolved]
  - Hypertension [Unknown]

NARRATIVE: CASE EVENT DATE: 2013
